FAERS Safety Report 7407624-8 (Version None)
Quarter: 2011Q2

REPORT INFORMATION
  Report Type: 
  Country: None (occurrence: None)
  Receive Date: 20110405
  Receipt Date: 20110328
  Transmission Date: 20111010
  Serious: Yes (Life-Threatening, Hospitalization, Disabling)
  Sender: FDA-Public Use
  Company Number: 2011SP001731

PATIENT
  Age: 66 Year
  Sex: Female
  Weight: 59 kg

DRUGS (15)
  1. NICARPINE [Concomitant]
  2. GASTER [Concomitant]
  3. FRESH FROZEN PLASMA [Concomitant]
  4. PLATELETS, CONCENTRATED [Concomitant]
  5. ELASPOL (SIVELESTAT SODIUM HYDRATE) [Concomitant]
  6. OMEGACIN [Concomitant]
  7. FUTHAN [Concomitant]
  8. ALBUMIN (HUMAN) [Concomitant]
  9. RED BLOOD CELLS, CONCENTRATED [Concomitant]
  10. HANP [Concomitant]
  11. BRIDION [Concomitant]
  12. ESLAX (ROCURONIUM BROMIDE /01245702/) [Suspect]
     Indication: RESPIRATORY DISORDER
     Dosage: 50 MG; Q3H; IV
     Route: 042
     Dates: start: 20101219, end: 20101224
  13. PROPOFOL [Suspect]
     Indication: SEDATION
     Dosage: 1 GM; QD; IV
     Route: 042
     Dates: start: 20101216, end: 20101224
  14. FENTANYL [Suspect]
     Indication: SEDATION
     Dosage: ; IV
     Route: 042
     Dates: start: 20101216, end: 20101224
  15. ANTHROBIN P [Concomitant]

REACTIONS (10)
  - BLOOD CREATINE PHOSPHOKINASE INCREASED [None]
  - CONTINUOUS HAEMODIAFILTRATION [None]
  - NEUROMUSCULAR BLOCK PROLONGED [None]
  - PARALYSIS FLACCID [None]
  - LIVER DISORDER [None]
  - JAUNDICE CHOLESTATIC [None]
  - ALTERED STATE OF CONSCIOUSNESS [None]
  - RENAL FAILURE ACUTE [None]
  - MYOPATHY [None]
  - ASTHENIA [None]
